FAERS Safety Report 8538623-0 (Version None)
Quarter: 2012Q3

REPORT INFORMATION
  Report Type: 
  Country: None (occurrence: None)
  Receive Date: 20120718
  Receipt Date: 20120718
  Transmission Date: 20120928
  Serious: Yes (Hospitalization)
  Sender: FDA-Public Use
  Company Number: None

PATIENT
  Age: 41 Year
  Sex: Female
  Weight: 66.2252 kg

DRUGS (1)
  1. FLUCONAZOLE [Suspect]
     Indication: FUNGAL INFECTION
     Dosage: 100 MG 1/DAY ORAL
     Route: 048
     Dates: start: 20120701, end: 20120704

REACTIONS (4)
  - PANIC ATTACK [None]
  - DECREASED APPETITE [None]
  - ANXIETY [None]
  - CONSTIPATION [None]
